FAERS Safety Report 6524514-3 (Version None)
Quarter: 2010Q1

REPORT INFORMATION
  Report Type: 
  Country: None (occurrence: None)
  Receive Date: 20100104
  Receipt Date: 20091223
  Transmission Date: 20100710
  Serious: Yes (Other)
  Sender: FDA-Public Use
  Company Number: DE-BRISTOL-MYERS SQUIBB COMPANY-14912984

PATIENT
  Age: 36 Year
  Sex: Male
  Weight: 70 kg

DRUGS (4)
  1. ABILIFY [Suspect]
     Dosage: INTIALLY 5MG,INCREASED TO 10MG
     Route: 048
  2. FLUANXOL DEPOT [Concomitant]
     Dosage: FLUPENTIXOLE DECANOATE,DEPOT FORMULATION:2MLFORNIGHTLY
  3. FLUANXOL [Concomitant]
     Dosage: 2MONTHS
     Route: 048
  4. MIRTAZAPINE [Concomitant]
     Route: 048

REACTIONS (1)
  - PSYCHOTIC DISORDER [None]
